FAERS Safety Report 8130592-0 (Version None)
Quarter: 2012Q1

REPORT INFORMATION
  Report Type: 
  Country: None (occurrence: None)
  Receive Date: 20120212
  Receipt Date: 20120130
  Transmission Date: 20120608
  Serious: Yes (Other)
  Sender: FDA-Public Use
  Company Number: GB-BRISTOL-MYERS SQUIBB COMPANY-16393753

PATIENT
  Age: 68 Year
  Sex: Male

DRUGS (3)
  1. BLEOMYCIN SULFATE [Suspect]
     Indication: TESTICULAR GERM CELL CANCER
  2. ETOPOSIDE [Suspect]
     Indication: TESTICULAR GERM CELL CANCER
  3. CISPLATIN [Suspect]
     Indication: TESTICULAR GERM CELL CANCER

REACTIONS (3)
  - FEBRILE NEUTROPENIA [None]
  - HYPOCALCAEMIA [None]
  - HYPOMAGNESAEMIA [None]
